FAERS Safety Report 14194892 (Version 5)
Quarter: 2018Q1

REPORT INFORMATION
  Report Type: Report from Study
  Country: JP (occurrence: JP)
  Receive Date: 20171116
  Receipt Date: 20180329
  Transmission Date: 20180508
  Serious: Yes (Other)
  Sender: FDA-Public Use
  Company Number: JP-ACTELION-A-CH2017-162136

PATIENT
  Age: 36 Year
  Sex: Female

DRUGS (20)
  1. PREDNISOLONE. [Concomitant]
     Active Substance: PREDNISOLONE
     Dosage: 20 MG, QD
  2. JUVELA N [Concomitant]
     Active Substance: TOCOPHERYL NICOTINATE, D-.ALPHA.
  3. GASTER [Concomitant]
     Active Substance: FAMOTIDINE
  4. CARELOAD [Concomitant]
     Active Substance: BERAPROST SODIUM
  5. LEUCOVORIN. [Concomitant]
     Active Substance: LEUCOVORIN
     Dosage: 20 MG, QD
  6. OPSUMIT [Suspect]
     Active Substance: MACITENTAN
     Dosage: 5 MG, QD
     Route: 048
     Dates: start: 20170721, end: 20170911
  7. OPSUMIT [Suspect]
     Active Substance: MACITENTAN
     Dosage: 5 MG, BID
     Route: 048
     Dates: start: 20170922
  8. OPSUMIT [Suspect]
     Active Substance: MACITENTAN
     Dosage: 2.5 MG, QD
     Route: 048
     Dates: start: 20170623, end: 20170720
  9. PREDNISOLONE. [Concomitant]
     Active Substance: PREDNISOLONE
     Dosage: 10 MG, QD
  10. CINAL [Concomitant]
     Active Substance: ASCORBIC ACID\CALCIUM PANTOTHENATE
  11. LEUCOVORIN. [Concomitant]
     Active Substance: LEUCOVORIN
     Dosage: UNK
  12. IMURAN [Concomitant]
     Active Substance: AZATHIOPRINE
  13. RHEUMATREX [Suspect]
     Active Substance: METHOTREXATE SODIUM
     Indication: MIXED CONNECTIVE TISSUE DISEASE
     Dosage: 6 MG, Q1WEEK
     Route: 048
     Dates: start: 201010, end: 20171027
  14. ANPLAG [Concomitant]
     Active Substance: SARPOGRELATE
  15. PREDNISOLONE. [Concomitant]
     Active Substance: PREDNISOLONE
     Dosage: UNK
  16. ALFAROL [Concomitant]
     Active Substance: ALFACALCIDOL
  17. OPSUMIT [Suspect]
     Active Substance: MACITENTAN
     Indication: PULMONARY ARTERIAL HYPERTENSION
     Dosage: 2.5 MG, OD
     Route: 048
     Dates: start: 20160923, end: 20161027
  18. OPSUMIT [Suspect]
     Active Substance: MACITENTAN
     Dosage: 5 MG, QD
     Route: 048
     Dates: start: 20161028, end: 20170324
  19. ADCIRCA [Concomitant]
     Active Substance: TADALAFIL
  20. BONOTEO [Concomitant]
     Active Substance: MINODRONIC ACID

REACTIONS (2)
  - Platelet count decreased [Not Recovered/Not Resolved]
  - Headache [Recovered/Resolved]

NARRATIVE: CASE EVENT DATE: 20170324
